FAERS Safety Report 15260346 (Version 1)
Quarter: 2018Q4

REPORT INFORMATION
  Report Type: Other
  Country: ES (occurrence: ES)
  Receive Date: 20180809
  Receipt Date: 20180809
  Transmission Date: 20190204
  Serious: Yes (Life-Threatening, Hospitalization)
  Sender: FDA-Public Use
  Company Number: ES-GENUS_LIFESCIENCES-USA-POI0580201800100

PATIENT
  Age: 14 Year
  Sex: Male

DRUGS (1)
  1. LEVOLET (LEVOTHYROXINE) [Suspect]
     Active Substance: LEVOTHYROXINE
     Dates: start: 2017, end: 2017

REACTIONS (5)
  - Dysarthria [Recovered/Resolved]
  - Atrioventricular block [Recovered/Resolved]
  - Suicide attempt [Recovered/Resolved]
  - Electrocardiogram repolarisation abnormality [Recovered/Resolved]
  - Lethargy [Recovered/Resolved]

NARRATIVE: CASE EVENT DATE: 201703
